FAERS Safety Report 19698690 (Version 2)
Quarter: 2021Q3

REPORT INFORMATION
  Report Type: Spontaneous
  Country: US (occurrence: US)
  Receive Date: 20210813
  Receipt Date: 20210819
  Transmission Date: 20211014
  Serious: Yes (Life-Threatening, Hospitalization, Other)
  Sender: FDA-Public Use
  Company Number: US-35507-2021-14360

PATIENT
  Sex: Male

DRUGS (10)
  1. LORAZEPAM. [Suspect]
     Active Substance: LORAZEPAM
     Indication: DRUG WITHDRAWAL SYNDROME NEONATAL
     Dosage: 0.05 MICROGRAM/KILOGRAM, EVERY 6 HOURS, ADJUVANT THERAPY INITIATED ON DAY OF LIFE 5
     Route: 065
  2. CLONIDINE. [Suspect]
     Active Substance: CLONIDINE
     Indication: WITHDRAWAL SYNDROME
     Dosage: 4 MICROGRAM/KILOGRAM, EVERY 3 HOURS
     Route: 065
  3. TRAZODONE [Suspect]
     Active Substance: TRAZODONE HYDROCHLORIDE
     Indication: MAJOR DEPRESSION
     Dosage: 150 MILLIGRAM, QD
     Route: 064
  4. CLONIDINE. [Suspect]
     Active Substance: CLONIDINE
     Dosage: 1.5 MICROGRAM/KILOGRAM, EVERY 8 HOURS
     Route: 065
  5. CLONIDINE. [Suspect]
     Active Substance: CLONIDINE
     Dosage: 3 MICROGRAM/KILOGRAM, EVERY 3 HOURS
     Route: 065
  6. MIDAZOLAM. [Suspect]
     Active Substance: MIDAZOLAM
     Indication: DRUG WITHDRAWAL SYNDROME NEONATAL
     Dosage: UNK,TEST DOSE
     Route: 065
  7. VENLAFAXINE [Suspect]
     Active Substance: VENLAFAXINE HYDROCHLORIDE
     Indication: MAJOR DEPRESSION
     Dosage: 150 MILLIGRAM, QD
     Route: 064
  8. SERTRALINE HYDROCHLORIDE TABLETS [Suspect]
     Active Substance: SERTRALINE HYDROCHLORIDE
     Indication: MAJOR DEPRESSION
     Dosage: 200 MILLIGRAM, QD
     Route: 064
  9. CLONIDINE. [Suspect]
     Active Substance: CLONIDINE
     Dosage: 1 MICROGRAM/KILOGRAM, EVERY 3 HOURS
     Route: 065
  10. BUSPIRONE [Suspect]
     Active Substance: BUSPIRONE HYDROCHLORIDE
     Indication: MAJOR DEPRESSION
     Dosage: 5 MILLIGRAM, TID
     Route: 064

REACTIONS (18)
  - Hypoglycaemia [Unknown]
  - Drug intolerance [Unknown]
  - Drug withdrawal syndrome neonatal [Recovering/Resolving]
  - Hypertonia [Unknown]
  - Heart rate decreased [Unknown]
  - Serotonin syndrome [Recovering/Resolving]
  - Foetal exposure during pregnancy [Unknown]
  - Hyperreflexia [Unknown]
  - Small for dates baby [Unknown]
  - Feeling jittery [Unknown]
  - Bradycardia neonatal [Unknown]
  - Foetal growth restriction [Unknown]
  - Toxicity to various agents [Unknown]
  - Tremor [Unknown]
  - Myoclonus [Unknown]
  - Finnegan score increased [Unknown]
  - Neonatal behavioural syndrome [Recovering/Resolving]
  - Off label use [Unknown]
